FAERS Safety Report 15866851 (Version 1)
Quarter: 2019Q1

REPORT INFORMATION
  Report Type: Spontaneous
  Country: US (occurrence: US)
  Receive Date: 20190124
  Receipt Date: 20190124
  Transmission Date: 20190417
  Serious: Yes (Disabling, Other)
  Sender: FDA-Public Use
  Company Number: None

PATIENT
  Age: 45 Year
  Sex: Male
  Weight: 155.25 kg

DRUGS (1)
  1. XARELTO [Suspect]
     Active Substance: RIVAROXABAN
     Indication: DEEP VEIN THROMBOSIS
     Dosage: ?          QUANTITY:1 TABLET(S);?
     Route: 048
     Dates: start: 20180221, end: 20190124

REACTIONS (5)
  - Liver disorder [None]
  - Epistaxis [None]
  - Bleeding time prolonged [None]
  - Alanine aminotransferase increased [None]
  - Hepatic steatosis [None]

NARRATIVE: CASE EVENT DATE: 20181220
